FAERS Safety Report 25421896 (Version 1)
Quarter: 2025Q2

REPORT INFORMATION
  Report Type: Spontaneous
  Country: BR (occurrence: BR)
  Receive Date: 20250611
  Receipt Date: 20250611
  Transmission Date: 20250716
  Serious: Yes (Death)
  Sender: AMGEN
  Company Number: BR-AMGEN-BRASP2025112429

PATIENT

DRUGS (1)
  1. RITUXIMAB [Suspect]
     Active Substance: RITUXIMAB
     Indication: Heart transplant
     Route: 065

REACTIONS (4)
  - Death [Fatal]
  - Drug effective for unapproved indication [Unknown]
  - Off label use [Unknown]
  - Left ventricular dysfunction [Not Recovered/Not Resolved]
